FAERS Safety Report 24697483 (Version 1)
Quarter: 2024Q4

REPORT INFORMATION
  Report Type: Spontaneous
  Country: US (occurrence: US)
  Receive Date: 20241204
  Receipt Date: 20241204
  Transmission Date: 20250114
  Serious: No
  Sender: JOHNSON AND JOHNSON
  Company Number: US-JNJFOC-20241153926

PATIENT

DRUGS (2)
  1. APALUTAMIDE [Suspect]
     Active Substance: APALUTAMIDE
     Indication: Product used for unknown indication
     Route: 048
     Dates: start: 202409
  2. ORGOVYX [Suspect]
     Active Substance: RELUGOLIX
     Indication: Product used for unknown indication
     Route: 065
     Dates: start: 202409

REACTIONS (3)
  - Arthralgia [Recovered/Resolved]
  - Hot flush [Unknown]
  - Libido decreased [Unknown]

NARRATIVE: CASE EVENT DATE: 20241001
